FAERS Safety Report 6065176-1 (Version None)
Quarter: 2009Q1

REPORT INFORMATION
  Report Type: 
  Country: None (occurrence: None)
  Receive Date: 20090204
  Receipt Date: 20090128
  Transmission Date: 20090719
  Serious: Yes (Other)
  Sender: FDA-Public Use
  Company Number: CA-ASTRAZENECA-2009UW02797

PATIENT
  Age: 2 Day
  Sex: Female
  Weight: 3 kg

DRUGS (3)
  1. XYLOCAINE [Suspect]
     Route: 051
  2. AMPICILLIN [Concomitant]
     Route: 042
  3. GENTAMICIN [Concomitant]
     Route: 042

REACTIONS (2)
  - METHAEMOGLOBINAEMIA [None]
  - PALLOR [None]
